FAERS Safety Report 21308338 (Version 2)
Quarter: 2022Q3

REPORT INFORMATION
  Report Type: Report from Study
  Country: US (occurrence: US)
  Receive Date: 20220908
  Receipt Date: 20220927
  Transmission Date: 20221027
  Serious: Yes (Hospitalization, Other)
  Sender: FDA-Public Use
  Company Number: US-GBT-016061

PATIENT
  Age: 31 Year
  Sex: Female

DRUGS (1)
  1. OXBRYTA [Suspect]
     Active Substance: VOXELOTOR
     Indication: Sickle cell disease
     Dosage: ON 29-SEP-2021, THE PATIENT RECEIVED THE LAST DOSE OF OXBRYTA PRIOR TO THE EVENT ONSET.
     Dates: start: 20210526

REACTIONS (1)
  - Acute chest syndrome [Recovered/Resolved]

NARRATIVE: CASE EVENT DATE: 20210930
